FAERS Safety Report 17133952 (Version 1)
Quarter: 2019Q4

REPORT INFORMATION
  Report Type: Spontaneous
  Country: US (occurrence: US)
  Receive Date: 20191210
  Receipt Date: 20191210
  Transmission Date: 20200122
  Serious: No
  Sender: FDA-Public Use
  Company Number: US-UCBSA-2016039754

PATIENT
  Age: 50 Year
  Sex: Female

DRUGS (1)
  1. CIMZIA [Suspect]
     Active Substance: CERTOLIZUMAB PEGOL
     Indication: CROHN^S DISEASE
     Dosage: 200MG/VIAL (400MG KIT); 400 MG, EV 3 WEEKS
     Route: 058
     Dates: start: 20141209

REACTIONS (5)
  - Rash [Unknown]
  - Ocular hyperaemia [Unknown]
  - Malaise [Unknown]
  - Off label use [Unknown]
  - Drug ineffective [Unknown]

NARRATIVE: CASE EVENT DATE: 20141209
